FAERS Safety Report 13398770 (Version 1)
Quarter: 2017Q2

REPORT INFORMATION
  Report Type: Spontaneous
  Country: CA (occurrence: CA)
  Receive Date: 20170403
  Receipt Date: 20170403
  Transmission Date: 20170830
  Serious: Yes (Hospitalization, Other)
  Sender: FDA-Public Use
  Company Number: CA-TEVA-755498ACC

PATIENT
  Age: 15 Year
  Sex: Female
  Weight: 61 kg

DRUGS (6)
  1. LITHIUM. [Suspect]
     Active Substance: LITHIUM
  2. CLOZAPINE. [Suspect]
     Active Substance: CLOZAPINE
     Indication: MENTAL DISORDER
     Route: 048
  3. DOCUSATE SODIUM. [Concomitant]
     Active Substance: DOCUSATE SODIUM
  4. POLYETHYLENE GLYCOL [Concomitant]
     Active Substance: POLYETHYLENE GLYCOLS
  5. HALOPERIDOL. [Suspect]
     Active Substance: HALOPERIDOL
     Indication: MENTAL DISORDER
     Dosage: 2 MILLIGRAM DAILY;
     Route: 048
  6. LITHIUM. [Suspect]
     Active Substance: LITHIUM
     Indication: MENTAL DISORDER
     Dosage: 600 MILLIGRAM DAILY;
     Route: 048

REACTIONS (2)
  - Delirium [Unknown]
  - Encephalopathy [Unknown]
